FAERS Safety Report 12586863 (Version 1)
Quarter: 2016Q3

REPORT INFORMATION
  Report Type: Spontaneous
  Country: US (occurrence: None)
  Receive Date: 20160722
  Receipt Date: 20160722
  Transmission Date: 20161109
  Serious: No
  Sender: FDA-Public Use
  Company Number: None

PATIENT
  Age: 62 Year
  Sex: Female

DRUGS (23)
  1. LEVEMIR [Concomitant]
     Active Substance: INSULIN DETEMIR
  2. LOPRESSOR [Concomitant]
     Active Substance: METOPROLOL TARTRATE
  3. CYMBALTA [Concomitant]
     Active Substance: DULOXETINE HYDROCHLORIDE
  4. RIBAVIRIN TAB 200MG [Suspect]
     Active Substance: RIBAVIRIN
     Indication: CHRONIC HEPATITIS C
     Dosage: 600 MG AM DAILY ORAL
     Route: 048
     Dates: start: 20160622
  5. RIBAVIRIN TAB 200MG [Suspect]
     Active Substance: RIBAVIRIN
     Indication: ANXIETY DISORDER
     Dosage: 600 MG AM DAILY ORAL
     Route: 048
     Dates: start: 20160622
  6. SOVALDI [Concomitant]
     Active Substance: SOFOSBUVIR
  7. DICYCLOMINE [Concomitant]
     Active Substance: DICYCLOMINE HYDROCHLORIDE
  8. RIBAVIRIN TAB 200MG [Suspect]
     Active Substance: RIBAVIRIN
     Indication: OSTEOARTHRITIS
     Dosage: 600 MG AM DAILY ORAL
     Route: 048
     Dates: start: 20160622
  9. ALDACTONE [Concomitant]
     Active Substance: SPIRONOLACTONE
  10. REQUIP [Concomitant]
     Active Substance: ROPINIROLE HYDROCHLORIDE
  11. SIMEMET [Concomitant]
  12. VALIUM [Concomitant]
     Active Substance: DIAZEPAM
  13. RIBAVIRIN TAB 200MG [Suspect]
     Active Substance: RIBAVIRIN
     Indication: FIBROMYALGIA
     Dosage: 600 MG AM DAILY ORAL
     Route: 048
     Dates: start: 20160622
  14. NITROSTAT [Concomitant]
     Active Substance: NITROGLYCERIN
  15. RIBAVIRIN TAB 200MG [Suspect]
     Active Substance: RIBAVIRIN
     Indication: GASTROOESOPHAGEAL REFLUX DISEASE
     Dosage: 600 MG AM DAILY ORAL
     Route: 048
     Dates: start: 20160622
  16. LYRICA [Concomitant]
     Active Substance: PREGABALIN
  17. COZAAR [Concomitant]
     Active Substance: LOSARTAN POTASSIUM
  18. TRAMADOL. [Concomitant]
     Active Substance: TRAMADOL
  19. KLOR-CON [Concomitant]
     Active Substance: POTASSIUM CHLORIDE
  20. TOUJEO [Concomitant]
     Active Substance: INSULIN GLARGINE
  21. LASIX [Concomitant]
     Active Substance: FUROSEMIDE
  22. PROZAC [Concomitant]
     Active Substance: FLUOXETINE HYDROCHLORIDE
  23. FARXIGA [Concomitant]
     Active Substance: DAPAGLIFLOZIN PROPANEDIOL

REACTIONS (3)
  - Hepatic cirrhosis [None]
  - Epistaxis [None]
  - Mouth haemorrhage [None]

NARRATIVE: CASE EVENT DATE: 20160721
